FAERS Safety Report 19839958 (Version 1)
Quarter: 2021Q3

REPORT INFORMATION
  Report Type: Spontaneous
  Country: US (occurrence: US)
  Receive Date: 20210915
  Receipt Date: 20210915
  Transmission Date: 20211014
  Serious: Yes (Other)
  Sender: FDA-Public Use
  Company Number: US-35507-2021-17224

PATIENT
  Age: 28 Year
  Sex: Male

DRUGS (2)
  1. CHOLESTYRAMINE. [Concomitant]
     Active Substance: CHOLESTYRAMINE
     Indication: CHOLESTATIC PRURITUS
     Dosage: 4 GRAM, QD
     Route: 065
  2. SERTRALINE [Suspect]
     Active Substance: SERTRALINE HYDROCHLORIDE
     Indication: CHOLESTATIC PRURITUS
     Dosage: 50 MILLIGRAM, QD
     Route: 065

REACTIONS (2)
  - Sexual dysfunction [Unknown]
  - Off label use [Unknown]
